FAERS Safety Report 6405390-6 (Version None)
Quarter: 2009Q4

REPORT INFORMATION
  Report Type: 
  Country: None (occurrence: None)
  Receive Date: 20091016
  Receipt Date: 20091016
  Transmission Date: 20100525
  Serious: No
  Sender: FDA-Public Use
  Company Number: None

PATIENT
  Age: 79 Year
  Sex: Male
  Weight: 97.5234 kg

DRUGS (4)
  1. DURICEF [Suspect]
     Indication: ANTIBIOTIC THERAPY
     Dosage: 1 2 DAILY ORAL
     Route: 048
     Dates: start: 20090911
  2. DURICEF [Suspect]
     Indication: ANTIBIOTIC THERAPY
     Dosage: 1 2 DAILY ORAL
     Route: 048
     Dates: start: 20090912
  3. DURICEF [Suspect]
     Indication: ANTIBIOTIC THERAPY
     Dosage: 1 2 DAILY ORAL
     Route: 048
     Dates: start: 20090913
  4. DURICEF [Suspect]
     Indication: ANTIBIOTIC THERAPY
     Dosage: 1 2 DAILY ORAL
     Route: 048
     Dates: start: 20090914

REACTIONS (8)
  - ASTHENIA [None]
  - BALANCE DISORDER [None]
  - DIZZINESS [None]
  - DYSPNOEA [None]
  - FEELING ABNORMAL [None]
  - GENERAL PHYSICAL HEALTH DETERIORATION [None]
  - HYPERHIDROSIS [None]
  - PALPITATIONS [None]
